FAERS Safety Report 17420595 (Version 5)
Quarter: 2020Q2

REPORT INFORMATION
  Report Type: Spontaneous
  Country: US (occurrence: US)
  Receive Date: 20200214
  Receipt Date: 20200421
  Transmission Date: 20200713
  Serious: Yes (Hospitalization, Other)
  Sender: FDA-Public Use
  Company Number: US-CELGENEUS-USA-20191201784

PATIENT
  Age: 64 Year
  Sex: Female

DRUGS (3)
  1. THALOMID [Suspect]
     Active Substance: THALIDOMIDE
     Indication: GASTROINTESTINAL ARTERIOVENOUS MALFORMATION
     Dosage: 100 MILLIGRAM (BLISTER PACK)
     Route: 048
     Dates: start: 2019, end: 20200124
  2. THALOMID [Suspect]
     Active Substance: THALIDOMIDE
     Indication: GASTROINTESTINAL ANGIODYSPLASIA
     Dosage: 100 MILLIGRAM (BLISTER PACK)
     Route: 048
     Dates: start: 20191108, end: 20191121
  3. THALOMID [Suspect]
     Active Substance: THALIDOMIDE
     Indication: OFF LABEL USE

REACTIONS (3)
  - Gastrointestinal haemorrhage [Recovered/Resolved]
  - Haemoglobin decreased [Recovered/Resolved]
  - Incarcerated hernia [Recovered/Resolved]

NARRATIVE: CASE EVENT DATE: 20190903
